FAERS Safety Report 6923475 (Version 3)
Quarter: 2012Q4

REPORT INFORMATION
  Report Type: Report from Study
  Country: IT (occurrence: IT)
  Receive Date: 20090227
  Receipt Date: 20121212
  Transmission Date: 20130627
  Serious: Yes (Hospitalization, Disabling, Other)
  Sender: FDA-Public Use
  Company Number: IT-PFIZER INC-2009173849

PATIENT
  Age: 69 Year
  Sex: Male
  Weight: 62 kg

DRUGS (20)
  1. ADRIBLASTINA [Suspect]
     Dosage: 80 mg, cyclic
     Dates: start: 20081029, end: 20090123
  2. REVLIMID [Suspect]
     Indication: DIFFUSE LARGE B-CELL LYMPHOMA
     Dosage: 20 mg, cyclic
     Route: 048
     Dates: start: 20081029
  3. REVLIMID [Suspect]
     Dosage: 20 mg, cyclic
     Route: 048
     Dates: start: 20081119, end: 20081121
  4. REVLIMID [Suspect]
     Dosage: 15 mg, cyclic
     Route: 048
     Dates: start: 20081122, end: 20081127
  5. REVLIMID [Suspect]
     Dosage: 10 mg, cyclic
     Route: 048
     Dates: end: 20090123
  6. RITUXIMAB [Suspect]
     Indication: DIFFUSE LARGE B-CELL LYMPHOMA
     Dosage: 600 mg, cyclic
     Route: 065
     Dates: start: 20081029
  7. RITUXIMAB [Suspect]
     Dosage: cyclic
     Route: 065
     Dates: start: 20081119
  8. RITUXIMAB [Suspect]
     Dosage: cyclic
     Route: 065
     Dates: end: 20090123
  9. ENDOXAN [Suspect]
     Dosage: 1200 mg, cyclic
     Route: 065
     Dates: start: 20081029
  10. ENDOXAN [Suspect]
     Dosage: 600 mg, cyclic
     Dates: start: 20081119
  11. ENDOXAN [Suspect]
     Dosage: cyclic
     Dates: end: 20090123
  12. PREDNISONE [Suspect]
     Dosage: 60 mg, cyclic
     Route: 065
     Dates: start: 20081029, end: 20090123
  13. ZEFFIX [Concomitant]
     Dosage: UNK
     Route: 048
     Dates: start: 20081029
  14. PURSENNID [Concomitant]
     Dosage: UNK
  15. NEULASTA [Concomitant]
     Dosage: UNK
  16. BACTRIM [Concomitant]
     Dosage: UNK
     Route: 048
     Dates: start: 20081029
  17. PYRIDOXINE HYDROCHLORIDE [Concomitant]
     Dosage: 100 mg, UNK
     Route: 048
     Dates: start: 20081126
  18. LYRICA [Concomitant]
     Dosage: 75 mg, UNK
     Route: 048
     Dates: start: 20081126
  19. SPORANOX [Concomitant]
     Dosage: 200 mg, UNK
     Route: 048
     Dates: start: 20081029
  20. ZOVIRAX [Concomitant]
     Dosage: 1600 mg, UNK
     Route: 048
     Dates: start: 20081029

REACTIONS (3)
  - Neuropathy peripheral [Recovered/Resolved]
  - Phlebitis [Recovered/Resolved with Sequelae]
  - Extravasation [Recovering/Resolving]
